FAERS Safety Report 6256630-8 (Version None)
Quarter: 2009Q3

REPORT INFORMATION
  Report Type: 
  Country: None (occurrence: None)
  Receive Date: 20090706
  Receipt Date: 20090701
  Transmission Date: 20100115
  Serious: Yes (Hospitalization)
  Sender: FDA-Public Use
  Company Number: FR-JNJFOC-20090700265

PATIENT
  Age: 78 Year
  Sex: Female

DRUGS (10)
  1. TAVANIC [Suspect]
     Indication: ENDOCARDITIS
     Route: 048
  2. CALCIPARINE [Suspect]
     Indication: THROMBOSIS PROPHYLAXIS
     Route: 058
  3. VANCOMYCIN SANDOZ [Suspect]
     Indication: HEART VALVE REPLACEMENT
     Route: 042
  4. GENTAMICINE PANPHARMA [Suspect]
     Indication: HEART VALVE REPLACEMENT
     Route: 042
  5. ZYVOXID [Suspect]
     Indication: ENDOCARDITIS
     Route: 048
  6. HEPARINE SODIQUE PANPHARMA [Suspect]
     Indication: EXTRACORPOREAL CIRCULATION
     Route: 042
  7. RANITIDINE HCL [Concomitant]
     Indication: GASTROINTESTINAL DISORDER THERAPY
     Route: 048
  8. PERINDOPRIL ERBUMINE [Concomitant]
     Indication: CARDIAC FAILURE
     Route: 048
  9. LASIX [Concomitant]
     Indication: CARDIAC FAILURE
     Route: 042
  10. ANTIVITAMIN K DRUG NOS [Concomitant]
     Route: 065

REACTIONS (2)
  - HAEMORRHAGE [None]
  - THROMBOCYTOPENIA [None]
